FAERS Safety Report 7019584-2 (Version None)
Quarter: 2010Q3

REPORT INFORMATION
  Report Type: 
  Country: None (occurrence: None)
  Receive Date: 20100928
  Receipt Date: 20100928
  Transmission Date: 20110219
  Serious: No
  Sender: FDA-Public Use
  Company Number: None

PATIENT
  Sex: Female
  Weight: 54.4316 kg

DRUGS (1)
  1. TOPAMAX [Suspect]
     Indication: MIGRAINE
     Dosage: 200MG 1X DAILY PO
     Route: 048
     Dates: start: 20051224, end: 20100913

REACTIONS (19)
  - ALCOHOL INTERACTION [None]
  - ALOPECIA [None]
  - ANGER [None]
  - ANXIETY [None]
  - DECREASED APPETITE [None]
  - DEPRESSION [None]
  - DIARRHOEA [None]
  - DISTURBANCE IN ATTENTION [None]
  - DRUG DOSE OMISSION [None]
  - FATIGUE [None]
  - FEELING ABNORMAL [None]
  - IRRITABILITY [None]
  - NERVOUSNESS [None]
  - NIGHT SWEATS [None]
  - PARAESTHESIA [None]
  - SPEECH DISORDER [None]
  - TINNITUS [None]
  - VISUAL IMPAIRMENT [None]
  - WEIGHT DECREASED [None]
